FAERS Safety Report 21126827 (Version 1)
Quarter: 2022Q3

REPORT INFORMATION
  Report Type: Spontaneous
  Country: US (occurrence: None)
  Receive Date: 20220725
  Receipt Date: 20220725
  Transmission Date: 20221027
  Serious: No
  Sender: FDA-Public Use
  Company Number: None

PATIENT
  Age: 89 Year
  Sex: Male
  Weight: 70.2 kg

DRUGS (22)
  1. POMALYST [Suspect]
     Active Substance: POMALIDOMIDE
     Indication: Plasma cell myeloma
     Dosage: OTHER FREQUENCY : 21 ON/7 OFF;?
     Route: 048
     Dates: start: 20220629
  2. ACYCLOVIR 400MG TABLETS [Concomitant]
  3. ALLOPURINOL [Concomitant]
     Active Substance: ALLOPURINOL
  4. amlodipine 2.5 mg tablet [Concomitant]
  5. t	amoxicillin 250 mg/5 mL oral suspension [Concomitant]
  6. Aspir-81 81 mg Tab [Concomitant]
  7. ATORVASTATIN [Concomitant]
     Active Substance: ATORVASTATIN
  8. cefdinir 250 mg/5 mL oral suspension [Concomitant]
  9. clotrimazole 1 % topical ointment [Concomitant]
  10. dexamethasone 20 mg tablet [Concomitant]
  11. finasteride 5 mg table [Concomitant]
  12. glimepiride 2 mg tablet [Concomitant]
  13. GABAPENTIN [Concomitant]
     Active Substance: GABAPENTIN
  14. LEVOTHYROXINE [Concomitant]
     Active Substance: LEVOTHYROXINE
  15. METRONIDAZOLE [Concomitant]
     Active Substance: METRONIDAZOLE
  16. MONTELUKAST SODIUM [Concomitant]
     Active Substance: MONTELUKAST SODIUM
  17. ondansetron HCl 8 mg tablet [Concomitant]
  18. oxybutynin chloride 5 mg tablet [Concomitant]
  19. pilocarpine 5 mg tablet [Concomitant]
  20. polymyxin B sulfate 10,000 unit-trimethoprim 1 mg/mL eye drops [Concomitant]
  21. Remeron 15 mg tablet [Concomitant]
  22. SINGULAIR [Concomitant]
     Active Substance: MONTELUKAST SODIUM

REACTIONS (1)
  - Neutrophil count decreased [None]

NARRATIVE: CASE EVENT DATE: 20220712
